FAERS Safety Report 5010769-3 (Version None)
Quarter: 2006Q2

REPORT INFORMATION
  Report Type: 
  Country: None (occurrence: None)
  Receive Date: 20060525
  Receipt Date: 20060516
  Transmission Date: 20061013
  Serious: Yes (Disabling)
  Sender: FDA-Public Use
  Company Number: FR-ROCHE-448335

PATIENT
  Age: 33 Year
  Sex: Female
  Weight: 61 kg

DRUGS (6)
  1. CELLCEPT [Suspect]
     Indication: DRUG USE FOR UNKNOWN INDICATION
     Route: 048
     Dates: end: 20041127
  2. CELLCEPT [Suspect]
     Dosage: INCREASED DOSAGE OF CELLCEPT.
     Route: 048
  3. CELLCEPT [Suspect]
     Dosage: CELLCEPT STRENGHT  250- 1DOSE IN THE MORNING AND 1 DOSE IN THE EVENING( TREATMENT AT DISCHARGE).
     Route: 048
     Dates: start: 20041115
  4. NEORAL [Suspect]
     Indication: DRUG USE FOR UNKNOWN INDICATION
     Route: 048
  5. NEORAL [Suspect]
     Dosage: DOSAGE WAS DECREASED.
     Route: 048
  6. NEORAL [Suspect]
     Dosage: 1 DOSE MORNING AND 1 DOSE EVENING(TREATMENT AT DISCHARGE).
     Route: 048
     Dates: start: 20041115

REACTIONS (5)
  - HERPES SIMPLEX [None]
  - MENINGITIS VIRAL [None]
  - OESOPHAGITIS [None]
  - PROCTALGIA [None]
  - VIRAL INFECTION [None]
